FAERS Safety Report 8290761-6 (Version None)
Quarter: 2012Q2

REPORT INFORMATION
  Report Type: 
  Country: None (occurrence: None)
  Receive Date: 20120417
  Receipt Date: 20120406
  Transmission Date: 20120825
  Serious: Yes (Hospitalization)
  Sender: FDA-Public Use
  Company Number: US-ACTELION-A-NJ2012-63932

PATIENT

DRUGS (3)
  1. TRACLEER [Suspect]
     Dosage: UNK
     Route: 048
     Dates: start: 20120101
  2. COUMADIN [Concomitant]
  3. TRACLEER [Suspect]
     Indication: PULMONARY ARTERIAL HYPERTENSION
     Dosage: UNK
     Route: 048
     Dates: start: 20110224, end: 20120101

REACTIONS (1)
  - ANKLE FRACTURE [None]
